FAERS Safety Report 4319046-7 (Version None)
Quarter: 2004Q1

REPORT INFORMATION
  Report Type: 
  Country: None (occurrence: None)
  Receive Date: 20040316
  Receipt Date: 20040311
  Transmission Date: 20041129
  Serious: Yes (Hospitalization)
  Sender: FDA-Public Use
  Company Number: 2004-03-0738

PATIENT
  Age: 56 Year
  Sex: Male

DRUGS (1)
  1. AERIUS (DESLORATADINE) TABLETS  ^LIKE CLARINEX^ [Suspect]
     Indication: RHINITIS ALLERGIC
     Dosage: ORAL
     Route: 048
     Dates: start: 20040201, end: 20040201

REACTIONS (1)
  - ATRIAL FIBRILLATION [None]
